FAERS Safety Report 19417997 (Version 1)
Quarter: 2021Q2

REPORT INFORMATION
  Report Type: Other
  Country: US (occurrence: US)
  Receive Date: 20210615
  Receipt Date: 20210615
  Transmission Date: 20210717
  Serious: No
  Sender: FDA-Public Use
  Company Number: US-ROCHE-2847709

PATIENT
  Sex: Female

DRUGS (1)
  1. OCREVUS [Suspect]
     Active Substance: OCRELIZUMAB
     Indication: RELAPSING MULTIPLE SCLEROSIS
     Dosage: OCREVUS WAS ON 13/NOV/2020?300 MG IV ON DAY 1 AND DAY 15, 600 MG Q 6 MONTHS
     Route: 042
     Dates: start: 20181210

REACTIONS (1)
  - Herpes zoster [Unknown]
